FAERS Safety Report 4910249-7 (Version None)
Quarter: 2006Q1

REPORT INFORMATION
  Report Type: 
  Country: None (occurrence: None)
  Receive Date: 20060209
  Receipt Date: 20060127
  Transmission Date: 20060701
  Serious: Yes (Hospitalization, Other)
  Sender: FDA-Public Use
  Company Number: 2006002080

PATIENT
  Age: 51 Year
  Sex: Female
  Weight: 64.8644 kg

DRUGS (11)
  1. VIAGRA [Suspect]
     Indication: PULMONARY HYPERTENSION
     Dosage: 150 MG (50 MG, 3 IN 1 D), ORAL
     Route: 048
     Dates: start: 20050101
  2. DIGOXIN [Concomitant]
  3. WARFARIN SODIUM [Concomitant]
  4. TRACLEER [Concomitant]
  5. REMODULIN (TREPROSTINOL) [Concomitant]
  6. MIRTAZAPINE [Concomitant]
  7. PREMARIN [Concomitant]
  8. ATIVAN [Concomitant]
  9. FLONASE [Concomitant]
  10. HABITROL [Concomitant]
  11. DARVOCET [Concomitant]

REACTIONS (2)
  - CONVULSION [None]
  - RETINITIS PIGMENTOSA [None]
